FAERS Safety Report 6926186-2 (Version None)
Quarter: 2010Q3

REPORT INFORMATION
  Report Type: 
  Country: None (occurrence: None)
  Receive Date: 20100816
  Receipt Date: 20100806
  Transmission Date: 20110219
  Serious: Yes (Other)
  Sender: FDA-Public Use
  Company Number: JP-PFIZER INC-2010089942

PATIENT
  Age: 66 Year
  Sex: Male
  Weight: 61 kg

DRUGS (6)
  1. CHAMPIX [Suspect]
     Indication: SMOKING CESSATION THERAPY
     Dosage: 0.5 MG, 1X/DAY
     Route: 048
     Dates: start: 20100615, end: 20100617
  2. CHAMPIX [Suspect]
     Indication: NICOTINE DEPENDENCE
     Dosage: 1 MG, 1X/DAY
     Dates: start: 20100618, end: 20100621
  3. CHAMPIX [Suspect]
     Dosage: 2 MG/DAY
     Dates: start: 20100622, end: 20100628
  4. CHAMPIX [Suspect]
     Dosage: 1 MG/DAY
     Dates: start: 20100629, end: 20100701
  5. AMLODIPINE BESYLATE [Suspect]
     Dosage: UNK
     Route: 048
     Dates: start: 20100319
  6. FELBINAC [Suspect]
     Indication: MUSCLE SPASMS

REACTIONS (3)
  - ABDOMINAL DISCOMFORT [None]
  - MUSCLE SPASMS [None]
  - STEVENS-JOHNSON SYNDROME [None]
